FAERS Safety Report 15627217 (Version 9)
Quarter: 2020Q4

REPORT INFORMATION
  Report Type: Report from Study
  Country: FR (occurrence: FR)
  Receive Date: 20181116
  Receipt Date: 20201016
  Transmission Date: 20210113
  Serious: Yes (Hospitalization, Other)
  Sender: FDA-Public Use
  Company Number: FR-PFIZER INC-2018468747

PATIENT
  Age: 80 Year
  Sex: Female

DRUGS (14)
  1. COLPOTROPHINE [Concomitant]
     Active Substance: PROMESTRIENE
     Indication: VAGINAL DISORDER
     Dosage: UNK
     Route: 065
  2. PARACETAMOL [Suspect]
     Active Substance: ACETAMINOPHEN
     Dosage: UNK
     Route: 065
  3. COVERSYL [PERINDOPRIL ERBUMINE] [Concomitant]
     Active Substance: PERINDOPRIL ERBUMINE
     Indication: HYPERTENSION
     Dosage: 5 MILLIGRAM
     Route: 048
     Dates: end: 20180810
  4. PANTOPRAZOLE [Concomitant]
     Active Substance: PANTOPRAZOLE
     Indication: PROPHYLAXIS AGAINST GASTROINTESTINAL ULCER
     Dosage: 20 MILLIGRAM
     Route: 048
  5. AMAREL [Concomitant]
     Active Substance: GLIMEPIRIDE
     Indication: DIABETES MELLITUS
     Dosage: 2 MILLIGRAM
     Route: 048
  6. APIXABAN [Suspect]
     Active Substance: APIXABAN
     Dosage: 5 MILLIGRAM, DAILY DOSAGE
     Route: 048
     Dates: start: 20180404
  7. SERTRALINE [Suspect]
     Active Substance: SERTRALINE HYDROCHLORIDE
     Indication: DEPRESSION
     Dosage: 150 MILLIGRAM
     Route: 065
     Dates: start: 2018
  8. MIRTAZAPINE. [Suspect]
     Active Substance: MIRTAZAPINE
     Indication: DEPRESSION
     Dosage: 15 MILLIGRAM
     Route: 065
     Dates: start: 2018
  9. SULPIRIDE [Concomitant]
     Active Substance: SULPIRIDE
     Indication: ANXIETY
     Dosage: 150 MILLIGRAM
     Route: 048
  10. LARGACTIL [Suspect]
     Active Substance: CHLORPROMAZINE
     Indication: DEPRESSION
     Dosage: 25 MILLIGRAM
     Route: 065
     Dates: start: 2018
  11. URISPAS [Concomitant]
     Active Substance: FLAVOXATE HYDROCHLORIDE
     Indication: MICTURITION URGENCY
     Dosage: 400 MILLIGRAM
     Route: 048
  12. SERTRALINE [Suspect]
     Active Substance: SERTRALINE HYDROCHLORIDE
     Dosage: 50 MILLIGRAM
     Route: 048
     Dates: start: 2018
  13. METFORMIN [Concomitant]
     Active Substance: METFORMIN HYDROCHLORIDE
     Indication: DIABETES MELLITUS
     Dosage: 500 MILLIGRAM
     Route: 048
  14. ATORVASTATIN [Concomitant]
     Active Substance: ATORVASTATIN
     Indication: DYSLIPIDAEMIA
     Dosage: 20 MILLIGRAM
     Route: 048

REACTIONS (8)
  - Decreased appetite [Unknown]
  - Fall [Unknown]
  - Hepatocellular injury [Recovered/Resolved]
  - Vertigo [Unknown]
  - Gamma-glutamyltransferase increased [Unknown]
  - Mixed anxiety and depressive disorder [Recovered/Resolved]
  - Epistaxis [Recovered/Resolved]
  - Vomiting [Unknown]

NARRATIVE: CASE EVENT DATE: 2018
